FAERS Safety Report 7497646-3 (Version None)
Quarter: 2011Q2

REPORT INFORMATION
  Report Type: 
  Country: None (occurrence: None)
  Receive Date: 20110523
  Receipt Date: 20110512
  Transmission Date: 20111010
  Serious: Yes (Other)
  Sender: FDA-Public Use
  Company Number: PHHY2011IN41625

PATIENT
  Age: 62 Year
  Sex: Female

DRUGS (1)
  1. LEFLUNOMIDE [Suspect]

REACTIONS (14)
  - PANCYTOPENIA [None]
  - TOXICITY TO VARIOUS AGENTS [None]
  - ARTHRALGIA [None]
  - SEPSIS [None]
  - GASTROENTERITIS [None]
  - HYPONATRAEMIA [None]
  - CARDIAC FAILURE [None]
  - BLOOD UREA INCREASED [None]
  - INFLAMMATION [None]
  - HEPATIC ENZYME ABNORMAL [None]
  - SWELLING [None]
  - ULCER [None]
  - EPISTAXIS [None]
  - RASH [None]
